FAERS Safety Report 8153912-X (Version None)
Quarter: 2012Q1

REPORT INFORMATION
  Report Type: 
  Country: None (occurrence: None)
  Receive Date: 20120221
  Receipt Date: 20120209
  Transmission Date: 20120608
  Serious: Yes (Life-Threatening, Hospitalization, Disabling)
  Sender: FDA-Public Use
  Company Number: DE-ROCHE-1039415

PATIENT
  Sex: Male
  Weight: 59.3 kg

DRUGS (4)
  1. RIBOFOLIN (GERMANY) [Concomitant]
     Indication: COLON CANCER METASTATIC
     Route: 042
     Dates: start: 20111227
  2. IRINOTECAN HCL [Concomitant]
     Indication: COLON CANCER METASTATIC
     Route: 042
     Dates: start: 20111227
  3. FLUOROURACIL [Concomitant]
     Indication: COLON CANCER METASTATIC
     Route: 042
     Dates: start: 20111227
  4. AVASTIN [Suspect]
     Indication: COLON CANCER METASTATIC
     Route: 042
     Dates: start: 20111227

REACTIONS (8)
  - ABSCESS INTESTINAL [None]
  - ILEUS [None]
  - ANAEMIA POSTOPERATIVE [None]
  - INFECTIOUS PERITONITIS [None]
  - SMALL INTESTINAL OBSTRUCTION [None]
  - IMPAIRED HEALING [None]
  - LIVER ABSCESS [None]
  - SMALL INTESTINAL PERFORATION [None]
